FAERS Safety Report 8255434 (Version 5)
Quarter: 2013Q4

REPORT INFORMATION
  Report Type: Spontaneous
  Country: AR (occurrence: AR)
  Receive Date: 20111118
  Receipt Date: 20131021
  Transmission Date: 20140711
  Serious: Yes (Hospitalization, Other)
  Sender: FDA-Public Use
  Company Number: AR-BRISTOL-MYERS SQUIBB COMPANY-16222531

PATIENT
  Age: 52 Year
  Sex: Female

DRUGS (3)
  1. ORENCIA [Suspect]
     Indication: RHEUMATOID ARTHRITIS
     Dosage: LAST DOSE ON 23OCT11,2 VIALS OF 250MG?26SEP
     Dates: start: 20080901
  2. METHOTREXATE [Concomitant]
  3. ASPIRIN [Concomitant]

REACTIONS (27)
  - Pericardial effusion [Unknown]
  - Thrombosis [Unknown]
  - Pulmonary fibrosis [Unknown]
  - Chest discomfort [Unknown]
  - Glaucoma [Unknown]
  - Diarrhoea [Unknown]
  - Osteonecrosis [Unknown]
  - Neurological symptom [Unknown]
  - Anxiety [Unknown]
  - Eating disorder [Unknown]
  - Abdominal distension [Unknown]
  - Oral mucosal blistering [Unknown]
  - Headache [Unknown]
  - Fungal infection [Unknown]
  - Dry eye [Unknown]
  - Nasal dryness [Unknown]
  - Pruritus generalised [Unknown]
  - Acne [Unknown]
  - Hypersensitivity [Unknown]
  - Oral pain [Unknown]
  - Fatigue [Unknown]
  - Pruritus [Unknown]
  - Infection [Unknown]
  - Local swelling [Unknown]
  - Uterine disorder [Unknown]
  - Vomiting [Unknown]
  - Hepatic cyst [Unknown]
